FAERS Safety Report 11805270 (Version 1)
Quarter: 2015Q4

REPORT INFORMATION
  Report Type: Spontaneous
  Country: GB (occurrence: GB)
  Receive Date: 20151206
  Receipt Date: 20151206
  Transmission Date: 20160305
  Serious: Yes (Hospitalization)
  Sender: FDA-Public Use
  Company Number: GB-MYLANLABS-2015M1042983

PATIENT

DRUGS (14)
  1. CLONAZEPAM. [Interacting]
     Active Substance: CLONAZEPAM
     Indication: PRODUCT USED FOR UNKNOWN INDICATION
     Dosage: 500MCG AT NIGHT
     Route: 065
  2. MELATONIN [Concomitant]
     Active Substance: MELATONIN
     Indication: PRODUCT USED FOR UNKNOWN INDICATION
     Dosage: 4 MG TABLET AT NIGHT
     Route: 065
  3. SENNA                              /00142201/ [Concomitant]
     Active Substance: SENNA LEAF
     Indication: PRODUCT USED FOR UNKNOWN INDICATION
     Dosage: 15 MG AT NIGHT
     Route: 065
  4. LAMOTRIGINE. [Suspect]
     Active Substance: LAMOTRIGINE
     Indication: PRODUCT USED FOR UNKNOWN INDICATION
     Route: 065
  5. ACETAMINOPHEN AND CODEINE [Concomitant]
     Active Substance: ACETAMINOPHEN\CODEINE PHOSPHATE
     Indication: PRODUCT USED FOR UNKNOWN INDICATION
     Dosage: CODEINE/PARACETAMOL: 8/500 TWO TABLETS FOUR TIMES A DAY
     Route: 065
  6. PREMPAK [Interacting]
     Active Substance: ESTROGENS, CONJUGATED\NORGESTREL
     Indication: PRODUCT USED FOR UNKNOWN INDICATION
     Dosage: 1 TABLET IN THE MORNING
     Route: 065
  7. GABAPENTIN. [Concomitant]
     Active Substance: GABAPENTIN
     Indication: PRODUCT USED FOR UNKNOWN INDICATION
     Route: 065
  8. DESMOPRESSIN [Concomitant]
     Active Substance: DESMOPRESSIN
     Indication: PRODUCT USED FOR UNKNOWN INDICATION
     Route: 065
  9. LEVOTHYROXINE SODIUM. [Concomitant]
     Active Substance: LEVOTHYROXINE SODIUM
     Dosage: 75 MCG IN THE MORNING
     Route: 065
  10. LEVOTHYROXINE SODIUM. [Concomitant]
     Active Substance: LEVOTHYROXINE SODIUM
     Indication: PRODUCT USED FOR UNKNOWN INDICATION
     Dosage: 50 MCG INCREASED TO 75 MCG
     Route: 065
  11. HYDROCORTISONE. [Concomitant]
     Active Substance: HYDROCORTISONE
     Indication: PRODUCT USED FOR UNKNOWN INDICATION
     Dosage: 5 MG AT TEATIME
     Route: 065
  12. HYDROCORTISONE. [Concomitant]
     Active Substance: HYDROCORTISONE
     Dosage: 10 MG AT MORNING AND LUNCHTIME
     Route: 065
  13. BACLOFEN. [Concomitant]
     Active Substance: BACLOFEN
     Indication: PRODUCT USED FOR UNKNOWN INDICATION
     Route: 065
  14. LACTULOSE. [Concomitant]
     Active Substance: LACTULOSE
     Indication: PRODUCT USED FOR UNKNOWN INDICATION
     Route: 065

REACTIONS (3)
  - Seizure [Unknown]
  - Drug interaction [Unknown]
  - Hyponatraemia [Unknown]
